FAERS Safety Report 5486094-3 (Version None)
Quarter: 2007Q4

REPORT INFORMATION
  Report Type: 
  Country: None (occurrence: None)
  Receive Date: 20071012
  Receipt Date: 20071008
  Transmission Date: 20080405
  Serious: Yes (Hospitalization)
  Sender: FDA-Public Use
  Company Number: 2007SP020302

PATIENT
  Age: 43 Year
  Sex: Female

DRUGS (8)
  1. SARASAR (LONAFARNIB) [Suspect]
     Indication: GLIOBLASTOMA MULTIFORME
     Dosage: 200 MG; BID; PO
     Route: 048
     Dates: start: 20070926, end: 20070930
  2. TEMODAR [Suspect]
     Indication: GLIOBLASTOMA MULTIFORME
     Dosage: 330 MG; QD; PO
     Route: 048
     Dates: start: 20070926, end: 20070930
  3. COMBIVENT [Concomitant]
  4. REGLAN [Concomitant]
  5. NEURONTIN [Concomitant]
  6. VALTREX [Concomitant]
  7. PEPCID [Concomitant]
  8. ESTRADIOL [Concomitant]

REACTIONS (4)
  - CONFUSIONAL STATE [None]
  - FEELING ABNORMAL [None]
  - NAUSEA [None]
  - VOMITING [None]
